FAERS Safety Report 23451420 (Version 4)
Quarter: 2025Q1

REPORT INFORMATION
  Report Type: Spontaneous
  Country: US (occurrence: US)
  Receive Date: 20240129
  Receipt Date: 20250318
  Transmission Date: 20250408
  Serious: Yes (Hospitalization, Disabling, Other)
  Sender: SANOFI AVENTIS
  Company Number: US-SA-SAC20240124001225

PATIENT
  Age: 88 Year
  Sex: Female

DRUGS (2)
  1. DUPIXENT [Suspect]
     Active Substance: DUPILUMAB
     Indication: Pemphigoid
     Route: 058
  2. DUPIXENT [Suspect]
     Active Substance: DUPILUMAB
     Indication: Dermatitis atopic
     Dosage: 300 MG, QOW
     Route: 058
     Dates: end: 2024

REACTIONS (26)
  - Cerebral haemorrhage [Unknown]
  - Skin infection [Unknown]
  - Gangrene [Unknown]
  - Wound complication [Unknown]
  - Pemphigoid [Unknown]
  - Condition aggravated [Unknown]
  - Blister [Unknown]
  - Deformity [Unknown]
  - Pruritus [Unknown]
  - Pain of skin [Unknown]
  - Fall [Unknown]
  - Gait disturbance [Unknown]
  - Cardiac failure congestive [Unknown]
  - Delirium [Unknown]
  - Oedema peripheral [Unknown]
  - Hypersomnia [Unknown]
  - Grip strength decreased [Unknown]
  - Agitation [Unknown]
  - Incontinence [Unknown]
  - Psychotic disorder [Unknown]
  - Amnesia [Unknown]
  - Asthenia [Unknown]
  - Nosocomial infection [Unknown]
  - Sleep disorder [Unknown]
  - Behaviour disorder [Unknown]
  - Product use in unapproved indication [Unknown]

NARRATIVE: CASE EVENT DATE: 20240101
